FAERS Safety Report 8832534 (Version 1)
Quarter: 2012Q4

REPORT INFORMATION
  Report Type: Spontaneous
  Country: US (occurrence: None)
  Receive Date: 20121009
  Receipt Date: 20121009
  Transmission Date: 20130627
  Serious: Yes (Other)
  Sender: FDA-Public Use
  Company Number: None

PATIENT
  Sex: Female

DRUGS (1)
  1. LEXAPRO [Suspect]
     Route: 048
     Dates: start: 201203

REACTIONS (4)
  - Depression [None]
  - Anxiety [None]
  - Insomnia [None]
  - Product substitution issue [None]
